FAERS Safety Report 20490354 (Version 1)
Quarter: 2022Q1

REPORT INFORMATION
  Report Type: Spontaneous
  Country: CN (occurrence: CN)
  Receive Date: 20220218
  Receipt Date: 20220218
  Transmission Date: 20220423
  Serious: Yes (Hospitalization)
  Sender: FDA-Public Use
  Company Number: CN-BAXTER-2022BAX003369

PATIENT
  Age: 55 Year
  Sex: Female
  Weight: 83 kg

DRUGS (9)
  1. CYCLOPHOSPHAMIDE [Suspect]
     Active Substance: CYCLOPHOSPHAMIDE
     Indication: Invasive ductal breast carcinoma
     Dosage: CYCLOPHOSPHAMIDE FOR INJECTION 0.95 G + 0.9% SODIUM CHLORIDE INJECTION 500 ML, ONE TIME
     Route: 041
     Dates: start: 20220127, end: 20220127
  2. CYCLOPHOSPHAMIDE [Suspect]
     Active Substance: CYCLOPHOSPHAMIDE
     Indication: Metastases to lymph nodes
  3. SODIUM CHLORIDE [Suspect]
     Active Substance: SODIUM CHLORIDE
     Indication: Medication dilution
     Dosage: CYCLOPHOSPHAMIDE FOR INJECTION 0.95 G + 0.9% SODIUM CHLORIDE INJECTION 500 ML, ONE TIME
     Route: 041
     Dates: start: 20220127, end: 20220127
  4. SODIUM CHLORIDE [Suspect]
     Active Substance: SODIUM CHLORIDE
     Dosage: DOCETAXEL INJECTION 140 MG + 0.9% SODIUM CHLORIDE INJECTION 250 ML, ONE TIME
     Route: 041
     Dates: start: 20220127, end: 20220127
  5. DEXTROSE [Suspect]
     Active Substance: DEXTROSE
     Indication: Medication dilution
     Dosage: PIRARUBICIN HYDROCHLORIDE FOR INJECTION 95 MG + 5% GLUCOSE INJECTION 250 ML, ONE TIME
     Route: 041
     Dates: start: 20220127, end: 20220127
  6. DOCETAXEL [Suspect]
     Active Substance: DOCETAXEL
     Indication: Invasive ductal breast carcinoma
     Dosage: DOCETAXEL INJECTION 140 MG + 0.9% SODIUM CHLORIDE INJECTION 250 ML, ONE TIME
     Route: 041
     Dates: start: 20220127, end: 20220127
  7. DOCETAXEL [Suspect]
     Active Substance: DOCETAXEL
     Indication: Metastases to lymph nodes
  8. PIRARUBICIN HYDROCHLORIDE [Suspect]
     Active Substance: PIRARUBICIN HYDROCHLORIDE
     Indication: Invasive ductal breast carcinoma
     Dosage: PIRARUBICIN HYDROCHLORIDE FOR INJECTION 95 MG + 5% GLUCOSE INJECTION 250 ML, ONE TIME
     Route: 041
     Dates: start: 20220127, end: 20220127
  9. PIRARUBICIN HYDROCHLORIDE [Suspect]
     Active Substance: PIRARUBICIN HYDROCHLORIDE
     Indication: Metastases to lymph nodes

REACTIONS (2)
  - White blood cell count decreased [Recovering/Resolving]
  - Neutrophil count decreased [Recovering/Resolving]

NARRATIVE: CASE EVENT DATE: 20220205
